FAERS Safety Report 6454035-8 (Version None)
Quarter: 2009Q4

REPORT INFORMATION
  Report Type: 
  Country: None (occurrence: None)
  Receive Date: 20091124
  Receipt Date: 20091117
  Transmission Date: 20100525
  Serious: Yes (Other)
  Sender: FDA-Public Use
  Company Number: A0822173A

PATIENT
  Age: 34 Year
  Sex: Female

DRUGS (2)
  1. WELLBUTRIN [Suspect]
     Indication: DEPRESSION
     Route: 048
  2. ISOTRETINOIN [Suspect]
     Indication: ACNE
     Dosage: 40MG PER DAY
     Route: 048
     Dates: start: 20080905, end: 20090615

REACTIONS (1)
  - CONVULSION [None]
